FAERS Safety Report 10243488 (Version 1)
Quarter: 2014Q2

REPORT INFORMATION
  Report Type: Spontaneous
  Country: US (occurrence: None)
  Receive Date: 20140616
  Receipt Date: 20140616
  Transmission Date: 20141212
  Serious: No
  Sender: FDA-Public Use
  Company Number: None

PATIENT
  Age: 72 Year
  Sex: Male
  Weight: 109.5 kg

DRUGS (1)
  1. BICALUTAMIDE (CASODEX) [Suspect]

REACTIONS (1)
  - Drug hypersensitivity [None]
